FAERS Safety Report 17104124 (Version 1)
Quarter: 2019Q4

REPORT INFORMATION
  Report Type: Spontaneous
  Country: US (occurrence: US)
  Receive Date: 20191107
  Receipt Date: 20191107
  Transmission Date: 20200122
  Serious: Yes (Other)
  Sender: FDA-Public Use
  Company Number: None

PATIENT
  Age: 67 Year
  Sex: Female
  Weight: 74.84 kg

DRUGS (10)
  1. XIIDRA [Concomitant]
     Active Substance: LIFITEGRAST
  2. LEVOTHYROXINE. [Concomitant]
     Active Substance: LEVOTHYROXINE
  3. FLUOROURACIL. [Suspect]
     Active Substance: FLUOROURACIL
     Indication: LIP DISORDER
     Dosage: ?          QUANTITY:SMALL THIN COATING;?
     Route: 061
     Dates: start: 20191009, end: 20191014
  4. LOSARTAN. [Concomitant]
     Active Substance: LOSARTAN
  5. ZYRTEC [Concomitant]
     Active Substance: CETIRIZINE HYDROCHLORIDE
  6. VITAMIN C [Concomitant]
     Active Substance: ASCORBIC ACID
  7. DICLOFENAC [Concomitant]
     Active Substance: DICLOFENAC
  8. MISOPROSTOL. [Concomitant]
     Active Substance: MISOPROSTOL
  9. VIT D [Concomitant]
     Active Substance: VITAMIN D NOS
  10. FLUOROURACIL. [Suspect]
     Active Substance: FLUOROURACIL
     Indication: PRECANCEROUS SKIN LESION
     Dosage: ?          QUANTITY:SMALL THIN COATING;?
     Route: 061
     Dates: start: 20191009, end: 20191014

REACTIONS (5)
  - Lip haemorrhage [None]
  - Lip blister [None]
  - Chapped lips [None]
  - Lip swelling [None]
  - Lip exfoliation [None]

NARRATIVE: CASE EVENT DATE: 20191010
